FAERS Safety Report 8734700 (Version 2)
Quarter: 2012Q4

REPORT INFORMATION
  Report Type: 
  Country: GB (occurrence: GB)
  Receive Date: 20120821
  Receipt Date: 20121005
  Transmission Date: 20130627
  Serious: Yes (Life-Threatening, Hospitalization)
  Sender: FDA-Public Use
  Company Number: PHFR2012GB004536

PATIENT
  Age: 43 Year
  Sex: Male
  Weight: 71.6 kg

DRUGS (8)
  1. CLOZARIL [Suspect]
     Indication: SCHIZOPHRENIA
     Dosage: 600 mg daily
     Route: 048
     Dates: start: 20040923
  2. FLUOXETINE [Concomitant]
     Dosage: 20 mg daily
     Route: 048
     Dates: start: 2009
  3. AMISULPRIDE [Concomitant]
     Dosage: 200 mg daily
     Route: 048
     Dates: start: 2006
  4. THIAMINE [Concomitant]
     Dosage: 50 mg, QD
     Route: 048
  5. VITAMIN B-COMPLEX [Concomitant]
     Dosage: UNK UKN, BID
     Route: 048
  6. HYOSCINE HYDROBROMIDE [Concomitant]
     Dosage: 300 ug daily
     Route: 048
     Dates: start: 2012
  7. OMEPRAZOLE [Concomitant]
     Dosage: 20 mg daily
     Route: 048
  8. DOCUSATE SODIUM [Concomitant]
     Dosage: 200 mg, BID
     Route: 048

REACTIONS (7)
  - Suicide attempt [Recovering/Resolving]
  - Intentional self-injury [Recovering/Resolving]
  - Jaw fracture [Recovering/Resolving]
  - Thoracic vertebral fracture [Recovering/Resolving]
  - Cervical vertebral fracture [Recovering/Resolving]
  - Wrist fracture [Recovering/Resolving]
  - Anxiety [Recovering/Resolving]
